FAERS Safety Report 4984312-9 (Version None)
Quarter: 2006Q2

REPORT INFORMATION
  Report Type: 
  Country: None (occurrence: None)
  Receive Date: 20060427
  Receipt Date: 20060424
  Transmission Date: 20061013
  Serious: Yes (Death, Hospitalization, Other)
  Sender: FDA-Public Use
  Company Number: PHRM2006FR01406

PATIENT
  Age: 17 Year
  Sex: Male
  Weight: 46 kg

DRUGS (4)
  1. CORTANCYL [Suspect]
     Indication: LIVER TRANSPLANT
     Dosage: 20 MG, BID
     Route: 048
     Dates: start: 20050301, end: 20060225
  2. CORTANCYL [Suspect]
     Route: 048
     Dates: end: 20020515
  3. IMUREL [Concomitant]
     Indication: LIVER TRANSPLANT
     Route: 048
     Dates: end: 20000510
  4. NEORAL [Suspect]
     Indication: LIVER TRANSPLANT
     Dosage: 200 MG, BID
     Route: 048
     Dates: start: 20000331, end: 20060225

REACTIONS (5)
  - EPSTEIN-BARR VIRUS INFECTION [None]
  - HODGKIN'S DISEASE [None]
  - INFECTION [None]
  - LIVER TRANSPLANT REJECTION [None]
  - MULTI-ORGAN FAILURE [None]
